FAERS Safety Report 8450902 (Version 3)
Quarter: 2013Q2

REPORT INFORMATION
  Report Type: Spontaneous
  Country: US (occurrence: US)
  Receive Date: 20120309
  Receipt Date: 20130418
  Transmission Date: 20140414
  Serious: Yes (Hospitalization)
  Sender: FDA-Public Use
  Company Number: US-BAYER-2012-022467

PATIENT
  Age: 35 Year
  Sex: Female
  Weight: 76.64 kg

DRUGS (10)
  1. YAZ [Suspect]
     Indication: CONTRACEPTION
     Dosage: UNK
     Dates: start: 20071016, end: 20080420
  2. XYZAL [Concomitant]
     Dosage: 5 MG, UNK
     Route: 048
  3. SINGULAIR [Concomitant]
     Dosage: 10 MG, UNK
     Route: 048
     Dates: start: 200803
  4. LEVAQUIN [Concomitant]
     Dosage: 500 MG, UNK
     Route: 048
     Dates: start: 20080402
  5. PRILOSEC [Concomitant]
     Dosage: 20 MG, UNK
     Route: 048
  6. NASACORT [Concomitant]
     Dosage: UNK
     Route: 045
     Dates: start: 20080210
  7. ADVAIR DISKUS [Concomitant]
     Route: 048
  8. NSAID^S [Concomitant]
     Route: 048
  9. VICODIN [Concomitant]
  10. AVELOX [Concomitant]
     Dosage: 400 MG, UNK

REACTIONS (7)
  - Pulmonary embolism [None]
  - Pain [None]
  - Injury [None]
  - General physical health deterioration [None]
  - Anxiety [None]
  - Emotional distress [None]
  - Pulmonary infarction [None]
